FAERS Safety Report 5257691-5 (Version None)
Quarter: 2007Q1

REPORT INFORMATION
  Report Type: 
  Country: None (occurrence: None)
  Receive Date: 20070307
  Receipt Date: 20070228
  Transmission Date: 20070707
  Serious: Yes (Hospitalization)
  Sender: FDA-Public Use
  Company Number: 2006UW08108

PATIENT
  Age: 16348 Day
  Sex: Female
  Weight: 136.4 kg

DRUGS (2)
  1. SEROQUEL [Suspect]
     Indication: DEPRESSION
     Route: 048
     Dates: start: 20040430, end: 20040702
  2. ABILIFY [Concomitant]

REACTIONS (3)
  - DIABETES MELLITUS [None]
  - MULTIPLE INJURIES [None]
  - SURGERY [None]
